FAERS Safety Report 15196826 (Version 3)
Quarter: 2018Q3

REPORT INFORMATION
  Report Type: Spontaneous
  Country: JP (occurrence: JP)
  Receive Date: 20180725
  Receipt Date: 20180813
  Transmission Date: 20181010
  Serious: No
  Sender: FDA-Public Use
  Company Number: JP-JNJFOC-20180602985

PATIENT
  Age: 74 Year
  Sex: Male

DRUGS (3)
  1. RISPERDAL [Suspect]
     Active Substance: RISPERIDONE
     Indication: SCHIZOPHRENIA
     Route: 048
     Dates: start: 20180127, end: 20180218
  2. RISPERDAL [Suspect]
     Active Substance: RISPERIDONE
     Indication: SCHIZOPHRENIA
     Route: 048
     Dates: start: 20180219
  3. DAIOKANZOTO [Suspect]
     Active Substance: LICORICE ROOT EXTRACT\RHUBARB
     Indication: CONSTIPATION
     Route: 048
     Dates: start: 20180130, end: 20180704

REACTIONS (1)
  - Sensory loss [Recovered/Resolved]

NARRATIVE: CASE EVENT DATE: 20180523
